FAERS Safety Report 8356128 (Version 3)
Quarter: 2013Q1

REPORT INFORMATION
  Report Type: Spontaneous
  Country: US (occurrence: US)
  Receive Date: 20120126
  Receipt Date: 20130129
  Transmission Date: 20140127
  Serious: Yes (Hospitalization, Other)
  Sender: FDA-Public Use
  Company Number: US-BAXTER-2012BH001565

PATIENT
  Age: 79 Year
  Sex: Male

DRUGS (2)
  1. DIANEAL LOW CALCIUM [Suspect]
     Indication: PERITONEAL DIALYSIS
     Route: 033
     Dates: start: 20100613
  2. GLUCOTROL XL [Concomitant]
     Indication: TYPE 2 DIABETES MELLITUS
     Route: 048

REACTIONS (5)
  - Hypoglycaemia [Recovering/Resolving]
  - Cardiac failure congestive [Recovered/Resolved]
  - Myocardial infarction [Recovering/Resolving]
  - Pulmonary fibrosis [Recovering/Resolving]
  - Asthenia [Recovering/Resolving]
